FAERS Safety Report 24082503 (Version 1)
Quarter: 2024Q3

REPORT INFORMATION
  Report Type: Spontaneous
  Country: US (occurrence: US)
  Receive Date: 20240712
  Receipt Date: 20240712
  Transmission Date: 20241017
  Serious: Yes (Other)
  Sender: NOVITIUM PHARMA
  Company Number: US-NOVITIUMPHARMA-2024USNVP01221

PATIENT
  Age: 57 Year
  Sex: Female

DRUGS (5)
  1. PREDNISONE [Suspect]
     Active Substance: PREDNISONE
     Indication: Acute lymphocytic leukaemia
  2. ASCIMINIB [Concomitant]
     Active Substance: ASCIMINIB
     Indication: Acute lymphocytic leukaemia
  3. ASCIMINIB [Concomitant]
     Active Substance: ASCIMINIB
  4. ASCIMINIB [Concomitant]
     Active Substance: ASCIMINIB
  5. DASATINIB [Concomitant]
     Active Substance: DASATINIB
     Indication: Acute lymphocytic leukaemia

REACTIONS (1)
  - Hyperamylasaemia [Unknown]
